FAERS Safety Report 9235683 (Version 1)
Quarter: 2013Q2

REPORT INFORMATION
  Report Type: Spontaneous
  Country: US (occurrence: None)
  Receive Date: 20130416
  Receipt Date: 20130416
  Transmission Date: 20140414
  Serious: Yes (Other)
  Sender: FDA-Public Use
  Company Number: None

PATIENT
  Age: 40 Year
  Sex: Male
  Weight: 58.06 kg

DRUGS (1)
  1. CIPROFLOXACIN [Suspect]
     Dates: start: 20130328, end: 20130415

REACTIONS (4)
  - Rash [None]
  - Dyspnoea [None]
  - Pain in extremity [None]
  - Chromaturia [None]
